FAERS Safety Report 17766879 (Version 2)
Quarter: 2020Q4

REPORT INFORMATION
  Report Type: Spontaneous
  Country: TW (occurrence: TW)
  Receive Date: 20200511
  Receipt Date: 20201223
  Transmission Date: 20210113
  Serious: Yes (Hospitalization, Other)
  Sender: FDA-Public Use
  Company Number: TW-CELGENEUS-TWN-20181008077

PATIENT
  Age: 79 Year
  Sex: Female
  Weight: 43 kg

DRUGS (44)
  1. AMLODIPINE BESYLATE. [Concomitant]
     Active Substance: AMLODIPINE BESYLATE
     Dosage: 5 MILLIGRAM
     Route: 048
     Dates: start: 20180922, end: 20181017
  2. HEPARIN [Concomitant]
     Active Substance: HEPARIN SODIUM
     Indication: PROPHYLAXIS
     Route: 065
     Dates: start: 20180919, end: 20180919
  3. AZACITIDINE. [Suspect]
     Active Substance: AZACITIDINE
     Indication: ACUTE MYELOID LEUKAEMIA
     Dosage: 75 MILLIGRAM/SQ. METER
     Route: 058
     Dates: start: 20180420, end: 20180924
  4. ESOMEPRAZOLE. [Concomitant]
     Active Substance: ESOMEPRAZOLE MAGNESIUM
     Indication: GASTROOESOPHAGEAL REFLUX DISEASE
     Route: 048
     Dates: start: 20180823, end: 20180917
  5. SULTAMICILLIN [Concomitant]
     Active Substance: SULTAMICILLIN
     Indication: ANAL ABSCESS
     Route: 048
     Dates: start: 20180926, end: 20181002
  6. VANCOMYCIN [Concomitant]
     Active Substance: VANCOMYCIN
     Dosage: 2000 MILLIGRAM
     Route: 041
     Dates: start: 20180531, end: 20180605
  7. TIGECYCLINE. [Concomitant]
     Active Substance: TIGECYCLINE
     Indication: ANAL ABSCESS
     Dosage: 100 MILLIGRAM
     Route: 041
     Dates: start: 20180914, end: 20180924
  8. ACETYLCYSTEINE. [Concomitant]
     Active Substance: ACETYLCYSTEINE
     Indication: COUGH
     Dosage: 600 MILLIGRAM
     Route: 048
     Dates: start: 20180917, end: 20180930
  9. LIDOCAINE. [Concomitant]
     Active Substance: LIDOCAINE
     Indication: ANAESTHESIA
     Route: 058
     Dates: start: 20180919, end: 20180919
  10. NORMAL SALINE SOLUTION [Concomitant]
     Active Substance: SODIUM CHLORIDE
     Indication: PROPHYLAXIS
     Route: 041
     Dates: start: 20180416, end: 20180419
  11. AZACITIDINE. [Suspect]
     Active Substance: AZACITIDINE
     Dosage: 75 MILLIGRAM/SQ. METER
     Route: 058
     Dates: start: 20181026
  12. VENETOCLAX (VERUM) [Concomitant]
     Indication: ACUTE MYELOID LEUKAEMIA
     Dosage: 10 MILLIGRAM
     Route: 048
     Dates: start: 20180420, end: 20180420
  13. VENETOCLAX (VERUM) [Concomitant]
     Dosage: 50 MILLIGRAM
     Route: 048
     Dates: start: 20180422, end: 20181015
  14. AMLODIPINE BESYLATE. [Concomitant]
     Active Substance: AMLODIPINE BESYLATE
     Indication: HYPERTENSION
     Dosage: 5 MILLIGRAM
     Route: 048
     Dates: start: 20180811, end: 20180917
  15. FILGRASTIM [Concomitant]
     Active Substance: FILGRASTIM
     Indication: LEUKOPENIA
     Dosage: 300 MICROGRAM
     Route: 058
     Dates: start: 20180913, end: 20181022
  16. DIPHENHYDRAMINE. [Concomitant]
     Active Substance: DIPHENHYDRAMINE
     Dosage: 30 MILLIGRAM
     Route: 041
     Dates: start: 20180918, end: 20180918
  17. POTASSIUM GLUCONATE [Concomitant]
     Active Substance: POTASSIUM GLUCONATE
     Dosage: 3570 MILLIGRAM
     Route: 048
     Dates: start: 20180921, end: 20180924
  18. MEDICON SYRUP [Concomitant]
     Indication: COUGH
     Dosage: 6 MILLILITER
     Route: 048
     Dates: start: 20180915, end: 20180915
  19. ALLOPURINOL. [Concomitant]
     Active Substance: ALLOPURINOL
     Indication: PROPHYLAXIS
     Dosage: 200 MILLIGRAM
     Route: 048
     Dates: start: 20180414, end: 20180503
  20. SULTAMICILLIN [Concomitant]
     Active Substance: SULTAMICILLIN
     Indication: INFECTION PROPHYLAXIS
     Dosage: 750 MILLIGRAM
     Route: 048
     Dates: start: 20180827, end: 20180903
  21. TIGECYCLINE. [Concomitant]
     Active Substance: TIGECYCLINE
     Dosage: 100 MILLIGRAM
     Route: 041
     Dates: start: 20180611, end: 20180621
  22. GRANISETRON [Concomitant]
     Active Substance: GRANISETRON
     Indication: VOMITING
     Dosage: 1 MILLIGRAM
     Route: 041
     Dates: start: 20180917, end: 20180918
  23. DIPHENHYDRAMINE. [Concomitant]
     Active Substance: DIPHENHYDRAMINE
     Indication: PROPHYLAXIS
     Dosage: 30 MILLIGRAM
     Route: 041
     Dates: start: 20180913, end: 20180913
  24. VANCOMYCIN [Concomitant]
     Active Substance: VANCOMYCIN
     Dosage: STAT
     Route: 041
     Dates: start: 20180531, end: 20180531
  25. VANCOMYCIN [Concomitant]
     Active Substance: VANCOMYCIN
     Dosage: STAT
     Route: 041
     Dates: start: 20180602, end: 20180602
  26. KCL IN SALINE [Concomitant]
     Indication: PROPHYLAXIS
     Dosage: 1000 ML
     Route: 041
     Dates: start: 20180420, end: 20180421
  27. VENETOCLAX (VERUM) [Concomitant]
     Dosage: 50 MILLIGRAM
     Route: 048
     Dates: start: 20181026
  28. LEVOCETIRIZINE [Concomitant]
     Active Substance: LEVOCETIRIZINE
     Indication: PROPHYLAXIS
     Dosage: 5 MILLIGRAM
     Route: 048
     Dates: start: 20180806
  29. POTASSIUM GLUCONATE [Concomitant]
     Active Substance: POTASSIUM GLUCONATE
     Indication: HYPOKALAEMIA
     Dosage: 1785 MILLIGRAM
     Route: 048
     Dates: start: 20180913, end: 20180913
  30. KCL [Concomitant]
     Active Substance: POTASSIUM CHLORIDE
     Indication: HYPOKALAEMIA
     Dosage: 405 MILLIGRAM
     Route: 041
     Dates: start: 20180914, end: 20180921
  31. TIGECYCLINE. [Concomitant]
     Active Substance: TIGECYCLINE
     Dosage: 200 MILLIGRAM
     Route: 041
     Dates: start: 20180816, end: 20180821
  32. GRANISETRON [Concomitant]
     Active Substance: GRANISETRON
     Indication: PROPHYLAXIS
     Dosage: 1 MILLIGRAM
     Route: 041
     Dates: start: 20180918, end: 20180924
  33. SULTAMICILLIN [Concomitant]
     Active Substance: SULTAMICILLIN
     Route: 048
     Dates: start: 20180910, end: 20180916
  34. METOCLOPRAMIDE. [Concomitant]
     Active Substance: METOCLOPRAMIDE
     Indication: VOMITING
     Dosage: 20 MILLIGRAM
     Route: 041
     Dates: start: 20180913, end: 20180913
  35. METOCLOPRAMIDE. [Concomitant]
     Active Substance: METOCLOPRAMIDE
     Dosage: 40 MILLIGRAM
     Route: 041
     Dates: start: 20180914, end: 20180924
  36. VANCOMYCIN [Concomitant]
     Active Substance: VANCOMYCIN
     Indication: ANAL ABSCESS
     Dosage: 2000 MILLIGRAM
     Route: 041
     Dates: start: 20180913, end: 20180914
  37. POTASSIUM GLUCONATE [Concomitant]
     Active Substance: POTASSIUM GLUCONATE
     Dosage: 5355 MILLIGRAM
     Route: 048
     Dates: start: 20180918, end: 20180921
  38. POTASSIUM GLUCONATE [Concomitant]
     Active Substance: POTASSIUM GLUCONATE
     Dosage: 1785 MILLIGRAM
     Route: 048
     Dates: start: 20181001, end: 20181003
  39. KCL IN SALINE [Concomitant]
     Dosage: 3500 ML
     Route: 041
     Dates: start: 20180421, end: 20180427
  40. VENETOCLAX (VERUM) [Concomitant]
     Dosage: 20 MILLIGRAM
     Route: 048
     Dates: start: 20180421, end: 20180421
  41. VORICONAZOLE. [Concomitant]
     Active Substance: VORICONAZOLE
     Indication: ASPERGILLUS INFECTION
     Dosage: 200 MILLIGRAM
     Route: 048
     Dates: start: 20180724
  42. BFLUID [Concomitant]
     Active Substance: AMINO ACIDS\DEXTROSE\ELECTROLYTES NOS\VITAMINS
     Indication: DECREASED APPETITE
     Route: 041
     Dates: start: 20180913, end: 20180924
  43. VANCOMYCIN [Concomitant]
     Active Substance: VANCOMYCIN
     Dosage: STAT
     Route: 041
     Dates: start: 20180809, end: 20180809
  44. TIGECYCLINE. [Concomitant]
     Active Substance: TIGECYCLINE
     Dosage: 100 MILLIGRAM
     Route: 041
     Dates: start: 20180821, end: 20180827

REACTIONS (1)
  - Anal abscess [Recovered/Resolved]

NARRATIVE: CASE EVENT DATE: 20181005
